FAERS Safety Report 9759848 (Version 1)
Quarter: 2013Q4

REPORT INFORMATION
  Report Type: Spontaneous
  Country: IT (occurrence: None)
  Receive Date: 20131212
  Receipt Date: 20131212
  Transmission Date: 20140711
  Serious: Yes (Hospitalization)
  Sender: FDA-Public Use
  Company Number: AUR-APL-2013-10349

PATIENT
  Age: 43 Year
  Sex: Female

DRUGS (2)
  1. PAROXETINE (PAROXETINE) [Suspect]
     Indication: PRODUCT USED FOR UNKNOWN INDICATION
     Dosage: 14 DOAGE FORMS, TOTAL, ORAL
     Route: 048
     Dates: start: 20131115, end: 20131115
  2. LEXOTAN (BROMAZEPAM) [Concomitant]

REACTIONS (4)
  - Alcohol poisoning [None]
  - Drug abuse [None]
  - Sopor [None]
  - Alcoholism [None]
